FAERS Safety Report 7260845-X (Version None)
Quarter: 2011Q1

REPORT INFORMATION
  Report Type: 
  Country: None (occurrence: None)
  Receive Date: 20110130
  Receipt Date: 20101112
  Transmission Date: 20110831
  Serious: No
  Sender: FDA-Public Use
  Company Number: US-ABBOTT-10P-163-0685117-00

PATIENT
  Age: 57 Year
  Sex: Female

DRUGS (13)
  1. HUMIRA [Suspect]
     Indication: RHEUMATOID ARTHRITIS
     Dates: start: 20101112
  2. DIAVON HCT [Concomitant]
     Indication: BLOOD PRESSURE
     Dosage: 320-25 DAILY
  3. TOPROL-XL [Concomitant]
     Indication: HEART RATE INCREASED
  4. FOLIC ACID [Concomitant]
     Indication: VITAMIN SUPPLEMENTATION
  5. ZANAFLEX [Concomitant]
     Indication: INSOMNIA
  6. SPIRONOLACTONE [Concomitant]
     Indication: BLOOD PRESSURE INCREASED
  7. OSTEO BIFLEX TRIPLE STRENGTH [Concomitant]
     Indication: VITAMIN SUPPLEMENTATION
  8. MULTI-VITAMIN [Concomitant]
     Indication: VITAMIN SUPPLEMENTATION
  9. SYNTHROID [Concomitant]
     Indication: HYPOTHYROIDISM
  10. ACTONEL [Concomitant]
     Indication: OSTEOPOROSIS
  11. CALTRATE + D [Concomitant]
     Indication: MINERAL SUPPLEMENTATION
  12. METHOTREXATE [Concomitant]
     Indication: RHEUMATOID ARTHRITIS
  13. FISH OIL [Concomitant]
     Indication: BLOOD TRIGLYCERIDES INCREASED

REACTIONS (2)
  - PAIN [None]
  - INJECTION SITE ANAESTHESIA [None]
